FAERS Safety Report 6912748-5 (Version None)
Quarter: 2010Q3

REPORT INFORMATION
  Report Type: 
  Country: None (occurrence: None)
  Receive Date: 20100806
  Receipt Date: 20081124
  Transmission Date: 20110219
  Serious: No
  Sender: FDA-Public Use
  Company Number: US-PFIZER INC-2008099749

PATIENT
  Sex: Female
  Weight: 58.97 kg

DRUGS (6)
  1. VFEND [Suspect]
     Indication: ASPERGILLOSIS
     Dates: start: 20081001
  2. ADVAIR DISKUS 100/50 [Concomitant]
  3. SPIRIVA [Concomitant]
  4. PERCOCET [Concomitant]
  5. PREVACID [Concomitant]
  6. PRILOSEC [Concomitant]

REACTIONS (2)
  - PYREXIA [None]
  - VISION BLURRED [None]
